FAERS Safety Report 14669573 (Version 1)
Quarter: 2018Q1

REPORT INFORMATION
  Report Type: Spontaneous
  Country: HU (occurrence: HU)
  Receive Date: 20180322
  Receipt Date: 20180322
  Transmission Date: 20180509
  Serious: Yes (Life-Threatening, Other)
  Sender: FDA-Public Use
  Company Number: HU-TEVA-2018-HU-871821

PATIENT
  Age: 52 Year
  Sex: Male
  Weight: 110 kg

DRUGS (3)
  1. ALGOPYRIN [Concomitant]
     Active Substance: METAMIZOLE SODIUM
     Indication: ABDOMINAL PAIN UPPER
     Dates: start: 20180307
  2. AMLODIPINE-TEVA 5 MG TABLET [Suspect]
     Active Substance: AMLODIPINE BESYLATE
     Indication: HYPERTENSION
     Dosage: 2.5 MILLIGRAM DAILY;
     Route: 048
     Dates: start: 20180305, end: 20180308
  3. VALSACOR [Concomitant]
     Active Substance: VALSARTAN
     Dosage: 2 DOSAGE FORMS DAILY;
     Dates: start: 20180108

REACTIONS (19)
  - Musculoskeletal chest pain [Recovered/Resolved]
  - Confusional state [Recovered/Resolved]
  - Arthritis [Unknown]
  - Depression [Unknown]
  - Insomnia [Unknown]
  - Pain [Unknown]
  - Nausea [Unknown]
  - Arthralgia [Recovering/Resolving]
  - Rash [Not Recovered/Not Resolved]
  - Hypokinesia [Unknown]
  - Somnolence [Recovered/Resolved]
  - Motor dysfunction [Unknown]
  - Dysstasia [Recovered/Resolved]
  - Back pain [Recovered/Resolved]
  - Feeling hot [Unknown]
  - Headache [Unknown]
  - Abdominal pain upper [Unknown]
  - Loss of consciousness [Recovered/Resolved]
  - Impaired work ability [Unknown]

NARRATIVE: CASE EVENT DATE: 20180306
